FAERS Safety Report 9995655 (Version 1)
Quarter: 2014Q1

REPORT INFORMATION
  Report Type: Spontaneous
  Country: US (occurrence: US)
  Receive Date: 20140311
  Receipt Date: 20140311
  Transmission Date: 20141002
  Serious: No
  Sender: FDA-Public Use
  Company Number: US-GALDERMA-US13002409

PATIENT
  Age: 67 Year
  Sex: Female

DRUGS (15)
  1. TRI-LUMA CREAM (FLUOCINOLONE ACETONIDE 0.01%, HYDROQUINONE 4%, TRETINO [Suspect]
     Indication: LENTIGO
     Route: 061
     Dates: start: 20130709, end: 20130723
  2. DIAL BAR SOAP [Concomitant]
     Indication: THERAPEUTIC SKIN CARE TOPICAL
     Route: 061
  3. VASELINE INTENSIVE CARE LOTION [Concomitant]
     Indication: DRY SKIN PROPHYLAXIS
     Route: 061
  4. PRAVASTATIN [Concomitant]
     Indication: BLOOD CHOLESTEROL
     Route: 048
     Dates: start: 2005
  5. BABY ASPIRIN [Concomitant]
     Route: 048
     Dates: start: 2005
  6. MULTIVITAMINS SENIOR FORMULA [Concomitant]
     Indication: VITAMIN SUPPLEMENTATION
     Route: 048
     Dates: start: 2005
  7. VITAMIN C [Concomitant]
     Indication: VITAMIN SUPPLEMENTATION
     Route: 048
     Dates: start: 2010
  8. B COMPLEX [Concomitant]
     Indication: VITAMIN SUPPLEMENTATION
  9. ALIGN PROBIOTIC [Concomitant]
     Indication: SUPPLEMENTATION THERAPY
  10. ALMAY BLUSHER [Concomitant]
     Dates: start: 1993
  11. TRESEMME SHAMPOO AND CONDITIONER [Concomitant]
     Route: 061
     Dates: start: 1993
  12. FISH OIL [Concomitant]
     Route: 048
     Dates: start: 2005
  13. CALCIUM CITRATE [Concomitant]
     Indication: MINERAL SUPPLEMENTATION
     Route: 048
     Dates: start: 1995
  14. LORAZEPAM [Concomitant]
  15. RESTASIS [Concomitant]
     Route: 047

REACTIONS (7)
  - Scab [Recovered/Resolved]
  - Skin exfoliation [Recovered/Resolved]
  - Pruritus [Not Recovered/Not Resolved]
  - Erythema [Recovered/Resolved]
  - Skin irritation [Recovered/Resolved]
  - Off label use [Recovered/Resolved]
  - Inappropriate schedule of drug administration [Recovered/Resolved]
